FAERS Safety Report 14589653 (Version 1)
Quarter: 2018Q1

REPORT INFORMATION
  Report Type: Report from Study
  Country: None (occurrence: BR)
  Receive Date: 20180302
  Receipt Date: 20180302
  Transmission Date: 20180509
  Serious: Yes (Hospitalization, Other)
  Sender: FDA-Public Use
  Company Number: BR-ABBVIE-17K-020-2085510-00

PATIENT
  Age: 46 Year
  Sex: Male
  Weight: 61 kg

DRUGS (3)
  1. HUMIRA [Suspect]
     Active Substance: ADALIMUMAB
     Indication: CROHN^S DISEASE
     Dosage: LOADING DOSE, WEEK 00
     Route: 058
     Dates: start: 20170808, end: 20170808
  2. HUMIRA [Suspect]
     Active Substance: ADALIMUMAB
     Dosage: MAINTENANCE DOSE
     Route: 058
     Dates: start: 2017, end: 201712
  3. HUMIRA [Suspect]
     Active Substance: ADALIMUMAB
     Dosage: LOADING DOSE, WEEK 02
     Route: 058
     Dates: start: 201708, end: 201708

REACTIONS (14)
  - Epistaxis [Recovered/Resolved]
  - Hypophagia [Recovering/Resolving]
  - Weight decreased [Recovering/Resolving]
  - Enteritis [Recovering/Resolving]
  - Pain [Recovered/Resolved]
  - Diarrhoea [Recovered/Resolved]
  - Abdominal pain [Recovered/Resolved]
  - Enteritis infectious [Unknown]
  - Drug ineffective [Recovered/Resolved]
  - Abdominal pain [Recovered/Resolved]
  - Gastrooesophageal reflux disease [Recovered/Resolved]
  - Intestinal polyp [Recovered/Resolved]
  - Epistaxis [Recovered/Resolved]
  - Abdominal pain [Unknown]

NARRATIVE: CASE EVENT DATE: 2017
